FAERS Safety Report 20802917 (Version 1)
Quarter: 2022Q2

REPORT INFORMATION
  Report Type: Spontaneous
  Country: CA (occurrence: CA)
  Receive Date: 20220509
  Receipt Date: 20220509
  Transmission Date: 20220721
  Serious: Yes (Death, Hospitalization, Other)
  Sender: FDA-Public Use
  Company Number: CA-NAPPMUNDI-GBR-2022-0097450

PATIENT
  Age: 65 Year
  Sex: Female
  Weight: 99 kg

DRUGS (10)
  1. HYDROMORPHONE HYDROCHLORIDE [Suspect]
     Active Substance: HYDROMORPHONE HYDROCHLORIDE
     Indication: Pain
     Dosage: 1 MILLIGRAM, EVERY 2 HOURS
     Route: 065
  2. LANREOTIDE ACETATE [Suspect]
     Active Substance: LANREOTIDE ACETATE
     Indication: Neuroendocrine carcinoma metastatic
     Dosage: 120 MILLIGRAM, EVERY 2 WEEKS
     Route: 058
  3. LANREOTIDE ACETATE [Suspect]
     Active Substance: LANREOTIDE ACETATE
     Dosage: 120 MILLIGRAM, EVERY 14 DAYS
     Route: 058
  4. LANREOTIDE ACETATE [Suspect]
     Active Substance: LANREOTIDE ACETATE
     Dosage: 180 MILLIGRAM, EVERY 2 WEEKS
     Route: 058
  5. LANREOTIDE ACETATE [Suspect]
     Active Substance: LANREOTIDE ACETATE
     Indication: Neuroendocrine carcinoma metastatic
     Dosage: 120 MILLIGRAM, EVERY 4 WEEKS
     Route: 058
  6. ASPIRIN [Concomitant]
     Active Substance: ASPIRIN
     Indication: Product used for unknown indication
     Dosage: 81 MILLIGRAM, DAILY
     Route: 065
  7. LASIX [Concomitant]
     Active Substance: FUROSEMIDE
     Indication: Product used for unknown indication
     Dosage: 60 MILLIGRAM, Q12H
     Route: 065
  8. LASIX [Concomitant]
     Active Substance: FUROSEMIDE
     Dosage: UNK, DAILY
     Route: 065
  9. METFORMIN HYDROCHLORIDE\SITAGLIPTIN PHOSPHATE [Concomitant]
     Active Substance: METFORMIN HYDROCHLORIDE\SITAGLIPTIN PHOSPHATE
     Indication: Type 2 diabetes mellitus
     Dosage: 1 DOSAGE FORM, DAILY
     Route: 065
  10. OCTREOTIDE ACETATE [Concomitant]
     Active Substance: OCTREOTIDE ACETATE
     Indication: Neuroendocrine tumour
     Dosage: 200 MICROGRAM, PRN
     Route: 058

REACTIONS (65)
  - Abdominal pain [Fatal]
  - Abdominal pain [Fatal]
  - Abdominal pain upper [Fatal]
  - Ascites [Fatal]
  - Asthenia [Fatal]
  - Blood pressure decreased [Fatal]
  - Carcinoid syndrome [Fatal]
  - Cellulitis [Fatal]
  - Chest pain [Fatal]
  - Complex regional pain syndrome [Fatal]
  - Constipation [Fatal]
  - Constipation [Fatal]
  - Contusion [Fatal]
  - Death [Fatal]
  - Decreased appetite [Fatal]
  - Dry mouth [Fatal]
  - Eating disorder [Fatal]
  - Eructation [Fatal]
  - Erythema [Fatal]
  - Eye contusion [Fatal]
  - Eye movement disorder [Fatal]
  - Faecal vomiting [Fatal]
  - Faeces discoloured [Fatal]
  - Faeces hard [Fatal]
  - Fall [Fatal]
  - Fall [Fatal]
  - Finger deformity [Fatal]
  - Flatulence [Fatal]
  - Flushing [Fatal]
  - Flushing [Fatal]
  - Fracture [Fatal]
  - Gait disturbance [Fatal]
  - Hypertension [Fatal]
  - Hypotension [Fatal]
  - Injection site mass [Fatal]
  - Injection site pain [Fatal]
  - Injection site pruritus [Fatal]
  - Intestinal obstruction [Fatal]
  - Joint swelling [Fatal]
  - Localised oedema [Fatal]
  - Malignant neoplasm progression [Fatal]
  - Malignant peritoneal neoplasm [Fatal]
  - Muscular weakness [Fatal]
  - Nausea [Fatal]
  - Nausea [Fatal]
  - Oedema peripheral [Fatal]
  - Off label use [Fatal]
  - Pain in extremity [Fatal]
  - Pleural effusion [Fatal]
  - Procedural nausea [Fatal]
  - Procedural pain [Fatal]
  - Procedural vomiting [Fatal]
  - Product lot number issue [Fatal]
  - Pseudostroke [Fatal]
  - Renal artery thrombosis [Fatal]
  - Renal cancer [Fatal]
  - Renal failure [Fatal]
  - Syncope [Fatal]
  - Terminal state [Fatal]
  - Therapeutic embolisation [Fatal]
  - Tooth disorder [Fatal]
  - Unresponsive to stimuli [Fatal]
  - Vomiting [Fatal]
  - Weight decreased [Fatal]
  - Weight increased [Fatal]
